FAERS Safety Report 7087352-1 (Version None)
Quarter: 2010Q4

REPORT INFORMATION
  Report Type: 
  Country: None (occurrence: None)
  Receive Date: 20101108
  Receipt Date: 20101028
  Transmission Date: 20110411
  Serious: Yes (Other)
  Sender: FDA-Public Use
  Company Number: US-BIOGENIDEC-2009BI034132

PATIENT
  Sex: Female
  Weight: 60 kg

DRUGS (2)
  1. AVONEX [Suspect]
     Indication: MULTIPLE SCLEROSIS
     Route: 030
     Dates: start: 20040601, end: 20080101
  2. AVONEX [Suspect]
     Route: 030
     Dates: start: 20090101

REACTIONS (2)
  - PETIT MAL EPILEPSY [None]
  - SCAR [None]
